FAERS Safety Report 10700977 (Version 1)
Quarter: 2014Q4

REPORT INFORMATION
  Report Type: Spontaneous
  Country: US (occurrence: None)
  Receive Date: 20141224
  Receipt Date: 20141224
  Transmission Date: 20150529
  Serious: Yes (Hospitalization, Other)
  Sender: FDA-Public Use
  Company Number: PHEH2014US020432

PATIENT
  Sex: Female
  Weight: 94.1 kg

DRUGS (1)
  1. EXJADE [Suspect]
     Active Substance: DEFERASIROX
     Indication: SICKLE CELL ANAEMIA
     Dosage: 3DF, QD (15000MG DAILY) ORAL
     Route: 048
     Dates: start: 20140507

REACTIONS (1)
  - Sickle cell anaemia with crisis [None]
